FAERS Safety Report 17100157 (Version 1)
Quarter: 2019Q4

REPORT INFORMATION
  Report Type: Spontaneous
  Country: FR (occurrence: FR)
  Receive Date: 20191202
  Receipt Date: 20191202
  Transmission Date: 20200122
  Serious: Yes (Hospitalization)
  Sender: FDA-Public Use
  Company Number: FR-GUERBET-FR-20191516

PATIENT
  Age: 31 Year
  Sex: Female

DRUGS (2)
  1. DOTAREM [Suspect]
     Active Substance: GADOTERATE MEGLUMINE
     Indication: MAGNETIC RESONANCE IMAGING HEART
     Route: 042
     Dates: start: 20191016, end: 20191016
  2. LUDEAL [Concomitant]
     Active Substance: ETHINYL ESTRADIOL\LEVONORGESTREL
     Indication: CONTRACEPTION
     Route: 048

REACTIONS (2)
  - Administration site pain [Not Recovered/Not Resolved]
  - Administration site thrombosis [Not Recovered/Not Resolved]

NARRATIVE: CASE EVENT DATE: 20191016
